FAERS Safety Report 12469348 (Version 2)
Quarter: 2016Q3

REPORT INFORMATION
  Report Type: Spontaneous
  Country: JP (occurrence: JP)
  Receive Date: 20160615
  Receipt Date: 20160706
  Transmission Date: 20161109
  Serious: Yes (Other)
  Sender: FDA-Public Use
  Company Number: JP-SA-2016SA111090

PATIENT
  Age: 82 Year
  Sex: Male

DRUGS (7)
  1. AMARYL [Suspect]
     Active Substance: GLIMEPIRIDE
     Route: 048
     Dates: start: 20140220, end: 20150309
  2. AMARYL [Suspect]
     Active Substance: GLIMEPIRIDE
     Route: 048
     Dates: start: 20150310
  3. AVAPRO [Concomitant]
     Active Substance: IRBESARTAN
     Route: 048
  4. ARTIST [Concomitant]
     Active Substance: CARVEDILOL
     Route: 048
  5. TENELIA [Concomitant]
     Active Substance: TENELIGLIPTIN
     Route: 065
  6. ADALAT [Concomitant]
     Active Substance: NIFEDIPINE
     Route: 048
  7. NEXIUM [Concomitant]
     Active Substance: ESOMEPRAZOLE MAGNESIUM
     Route: 048

REACTIONS (1)
  - Gastric cancer [Unknown]
